FAERS Safety Report 9208825 (Version 1)
Quarter: 2013Q2

REPORT INFORMATION
  Report Type: Spontaneous
  Country: US (occurrence: US)
  Receive Date: 20130404
  Receipt Date: 20130404
  Transmission Date: 20140414
  Serious: No
  Sender: FDA-Public Use
  Company Number: US-PFIZER INC-2013106118

PATIENT
  Age: 65 Year
  Sex: Female
  Weight: 117.91 kg

DRUGS (1)
  1. ZOLOFT [Suspect]
     Indication: DEPRESSION
     Dosage: 125 MG (TAKING 100MG AND 25MG ORAL TABLET TOGETHER), 1X/DAY
     Route: 048
     Dates: end: 201301

REACTIONS (5)
  - Headache [Unknown]
  - Gastric disorder [Unknown]
  - Irritability [Unknown]
  - Stress [Unknown]
  - Tension [Unknown]
